FAERS Safety Report 10091724 (Version 1)
Quarter: 2014Q2

REPORT INFORMATION
  Report Type: Spontaneous
  Country: US (occurrence: US)
  Receive Date: 20140421
  Receipt Date: 20140421
  Transmission Date: 20141212
  Serious: No
  Sender: FDA-Public Use
  Company Number: US-PURDUE-USA-2014-0111349

PATIENT
  Sex: Female

DRUGS (1)
  1. OXYCODONE HCL IR CAPSULES [Suspect]
     Indication: PRODUCT USED FOR UNKNOWN INDICATION
     Route: 048

REACTIONS (2)
  - Nausea [Unknown]
  - Drug intolerance [Unknown]
